APPROVED DRUG PRODUCT: LIDOCAINE AND PRILOCAINE
Active Ingredient: LIDOCAINE; PRILOCAINE
Strength: 2.5%;2.5%
Dosage Form/Route: CREAM;TOPICAL
Application: A205887 | Product #001
Applicant: PAI HOLDINGS LLC DBA PHARMACEUTICAL ASSOCIATES INC
Approved: Jun 29, 2018 | RLD: No | RS: No | Type: DISCN